FAERS Safety Report 24754161 (Version 1)
Quarter: 2024Q4

REPORT INFORMATION
  Report Type: Report from Study
  Country: EG (occurrence: EG)
  Receive Date: 20241219
  Receipt Date: 20241219
  Transmission Date: 20250115
  Serious: Yes (Other)
  Sender: NOVARTIS
  Company Number: EG-002147023-NVSC2024EG239811

PATIENT
  Sex: Male
  Weight: 70 kg

DRUGS (1)
  1. SCEMBLIX [Suspect]
     Active Substance: ASCIMINIB HYDROCHLORIDE
     Indication: Chronic myeloid leukaemia
     Dosage: 2 DOSAGE FORM, QD (80 MG)
     Route: 048
     Dates: start: 20240515, end: 20240902

REACTIONS (3)
  - Abdominal distension [Recovering/Resolving]
  - Condition aggravated [Recovering/Resolving]
  - Abdominal pain [Recovering/Resolving]
